FAERS Safety Report 25299148 (Version 2)
Quarter: 2025Q2

REPORT INFORMATION
  Report Type: Spontaneous
  Country: CZ (occurrence: CZ)
  Receive Date: 20250512
  Receipt Date: 20250521
  Transmission Date: 20250716
  Serious: Yes (Other)
  Sender: ALEXION PHARMACEUTICALS
  Company Number: CZ-STADA-01387077

PATIENT

DRUGS (2)
  1. OLAPARIB [Interacting]
     Active Substance: OLAPARIB
     Indication: Ovarian cancer
     Route: 065
  2. VERAPAMIL [Interacting]
     Active Substance: VERAPAMIL HYDROCHLORIDE
     Indication: Ovarian cancer
     Route: 065

REACTIONS (3)
  - Drug interaction [Unknown]
  - Fatigue [Unknown]
  - Drug level increased [Unknown]
